FAERS Safety Report 7962923-6 (Version None)
Quarter: 2011Q4

REPORT INFORMATION
  Report Type: 
  Country: None (occurrence: None)
  Receive Date: 20111207
  Receipt Date: 20111128
  Transmission Date: 20120403
  Serious: Yes (Other)
  Sender: FDA-Public Use
  Company Number: US-ASTRAZENECA-2010SE02873

PATIENT
  Age: 76 Year
  Sex: Female

DRUGS (2)
  1. PRILOSEC [Suspect]
     Route: 048
  2. NEXIUM [Suspect]
     Indication: GASTROOESOPHAGEAL REFLUX DISEASE
     Route: 048

REACTIONS (6)
  - METASTASES TO LYMPH NODES [None]
  - BREAST CANCER [None]
  - DRUG DOSE OMISSION [None]
  - ODYNOPHAGIA [None]
  - GASTROOESOPHAGEAL REFLUX DISEASE [None]
  - MUSCULOSKELETAL PAIN [None]
